FAERS Safety Report 6348245-8 (Version None)
Quarter: 2009Q3

REPORT INFORMATION
  Report Type: 
  Country: None (occurrence: None)
  Receive Date: 20090908
  Receipt Date: 20090824
  Transmission Date: 20100115
  Serious: Yes (Life-Threatening, Hospitalization)
  Sender: FDA-Public Use
  Company Number: 2009002109

PATIENT
  Age: 65 Year
  Sex: Female

DRUGS (12)
  1. ERLOTINIB HYDROCHLORIDE [Suspect]
     Indication: NON-SMALL CELL LUNG CANCER
     Dosage: (150 MG, QD), ORAL
     Route: 048
     Dates: start: 20090519, end: 20090526
  2. BLINDED PO 4858696 (INJECTION FOR INFUSION) [Suspect]
     Indication: NON-SMALL CELL LUNG CANCER
     Dosage: (QW), INTRAVENOUS
     Route: 042
     Dates: start: 20090519, end: 20090526
  3. ZOPICLONE (ZOPICLONE) [Concomitant]
  4. CITALOPRAM HYDROBROMIDE [Concomitant]
  5. LEVOTHYROXINE SODIUM [Concomitant]
  6. DEXAMETHASONE TAB [Concomitant]
  7. OMEPRAZOLE [Concomitant]
  8. FLUCONAZOLE [Concomitant]
  9. IMMODIUM [Concomitant]
  10. TRAMADOL HCL [Concomitant]
  11. TEMAZEPAM [Concomitant]
  12. ORAMORPH SR [Concomitant]

REACTIONS (14)
  - BACK PAIN [None]
  - BLISTER [None]
  - CELLULITIS [None]
  - CEREBRAL INFARCTION [None]
  - CONVULSION [None]
  - DIARRHOEA [None]
  - DISEASE PROGRESSION [None]
  - DYSPHAGIA [None]
  - ELECTROCARDIOGRAM ST SEGMENT ELEVATION [None]
  - HAEMOGLOBIN DECREASED [None]
  - MUCOSAL INFLAMMATION [None]
  - PAIN [None]
  - PLATELET COUNT DECREASED [None]
  - URINARY TRACT INFECTION [None]
